FAERS Safety Report 10188622 (Version 1)
Quarter: 2014Q2

REPORT INFORMATION
  Report Type: Spontaneous
  Country: US (occurrence: US)
  Receive Date: 20140522
  Receipt Date: 20140522
  Transmission Date: 20141212
  Serious: No
  Sender: FDA-Public Use
  Company Number: US-SA-2014SA016927

PATIENT
  Age: 46 Year
  Sex: Female

DRUGS (4)
  1. SOLOSTAR [Suspect]
     Indication: DEVICE THERAPY
     Dates: start: 201304
  2. LANTUS SOLOSTAR [Suspect]
     Indication: TYPE 2 DIABETES MELLITUS
     Dosage: DOSE:15 UNIT(S)
     Route: 051
     Dates: start: 201304
  3. METFORMIN [Concomitant]
  4. GLUCOPHAGE [Concomitant]

REACTIONS (10)
  - Blood glucose increased [Unknown]
  - Injection site pain [Unknown]
  - Injection site haemorrhage [Unknown]
  - Injection site bruising [Unknown]
  - Visual impairment [Unknown]
  - Fall [Unknown]
  - Periorbital contusion [Unknown]
  - Contusion [Unknown]
  - Incorrect product storage [Unknown]
  - Wrong technique in drug usage process [Unknown]
